FAERS Safety Report 10716209 (Version 1)
Quarter: 2015Q1

REPORT INFORMATION
  Report Type: Spontaneous
  Country: US (occurrence: None)
  Receive Date: 20150109
  Receipt Date: 20150109
  Transmission Date: 20150721
  Serious: Yes (Other)
  Sender: FDA-Public Use
  Company Number: 2014PROUSA03830

PATIENT
  Age: 67 Year
  Sex: Male
  Weight: 87.1 kg

DRUGS (1)
  1. PROVENGE [Suspect]
     Active Substance: SIPULEUCEL-T
     Indication: PROSTATE CANCER METASTATIC
     Dosage: 250 ML, SINGLE , INTRAVENOUS
     Route: 042
     Dates: start: 20140509, end: 20140509

REACTIONS (4)
  - Red blood cell count decreased [None]
  - Haemoglobin decreased [None]
  - Haematocrit decreased [None]
  - Poor venous access [None]

NARRATIVE: CASE EVENT DATE: 201406
